FAERS Safety Report 11058682 (Version 1)
Quarter: 2015Q2

REPORT INFORMATION
  Report Type: Report from Study
  Country: CA (occurrence: CA)
  Receive Date: 20150423
  Receipt Date: 20150423
  Transmission Date: 20150821
  Serious: Yes (Other)
  Sender: FDA-Public Use
  Company Number: CA-JNJFOC-20150414899

PATIENT
  Sex: Female
  Weight: 53 kg

DRUGS (1)
  1. REMICADE [Suspect]
     Active Substance: INFLIXIMAB
     Indication: PRODUCT USED FOR UNKNOWN INDICATION
     Route: 042
     Dates: start: 201111

REACTIONS (6)
  - Abdominal pain [Unknown]
  - Defaecation urgency [Unknown]
  - Condition aggravated [Unknown]
  - Haematochezia [Unknown]
  - Diarrhoea [Unknown]
  - Surgery [Unknown]

NARRATIVE: CASE EVENT DATE: 2015
